FAERS Safety Report 5900740-9 (Version None)
Quarter: 2008Q3

REPORT INFORMATION
  Report Type: 
  Country: None (occurrence: None)
  Receive Date: 20080929
  Receipt Date: 20080917
  Transmission Date: 20090109
  Serious: Yes (Disabling)
  Sender: FDA-Public Use
  Company Number: GB-RANBAXY-2008RR-18115

PATIENT
  Age: 57 Year
  Sex: Female

DRUGS (8)
  1. GABAPENTIN CAPSULE 100MG [Suspect]
     Indication: NEURALGIA
     Dosage: 400 MG, QD
     Route: 048
  2. ELOXATIN [Suspect]
     Indication: NEOPLASM MALIGNANT
     Dosage: 85 MG/M2, 2/WEEK
     Route: 041
     Dates: start: 20050315, end: 20050830
  3. FEXOFENADINE [Concomitant]
  4. FLUOROURACIL [Concomitant]
     Indication: GASTROINTESTINAL CARCINOMA
     Dosage: 2400 MG, 2/WEEK
     Route: 040
     Dates: start: 20050315, end: 20050830
  5. FLUOROURACIL [Concomitant]
     Dosage: 400 MG, 2/WEEK
     Route: 040
     Dates: start: 20050315, end: 20050830
  6. FOLIC ACID [Concomitant]
     Indication: COLON CANCER
     Dosage: 350 MG, 2/WEEK
     Route: 042
     Dates: start: 20050315, end: 20050830
  7. PREMIQUE [Concomitant]
  8. VITAMIN B6 [Concomitant]
     Dosage: 600 MG, QD

REACTIONS (8)
  - ARTHRALGIA [None]
  - DEPRESSED MOOD [None]
  - GASTRIC HYPOMOTILITY [None]
  - NEUROPATHY PERIPHERAL [None]
  - PAIN [None]
  - PAIN IN EXTREMITY [None]
  - PARAESTHESIA [None]
  - PERIPHERAL SENSORY NEUROPATHY [None]
